FAERS Safety Report 7813692-1 (Version None)
Quarter: 2011Q4

REPORT INFORMATION
  Report Type: 
  Country: None (occurrence: None)
  Receive Date: 20111014
  Receipt Date: 20111003
  Transmission Date: 20120403
  Serious: Yes (Hospitalization)
  Sender: FDA-Public Use
  Company Number: US-ELI_LILLY_AND_COMPANY-US201109004165

PATIENT
  Sex: Female

DRUGS (7)
  1. CALCIUM CARBONATE [Concomitant]
     Dosage: 1800 MG, QD
  2. AMBIEN [Concomitant]
     Dosage: UNK, PRN
  3. NADOLOL [Concomitant]
     Dosage: UNK, QD
  4. SPIRONOLACTONE [Concomitant]
     Dosage: UNK, QD
  5. NEXIUM [Concomitant]
     Indication: GASTRIC DISORDER
     Dosage: UNK, QD
  6. FORTEO [Suspect]
     Indication: OSTEOPOROSIS
     Dosage: 20 UG, QD
     Route: 065
     Dates: start: 20110901
  7. VITAMIN TAB [Concomitant]
     Dosage: UNK, QD

REACTIONS (3)
  - HEART RATE INCREASED [None]
  - BACK PAIN [None]
  - THORACIC VERTEBRAL FRACTURE [None]
